FAERS Safety Report 9275100 (Version 2)
Quarter: 2013Q2

REPORT INFORMATION
  Report Type: Spontaneous
  Country: US (occurrence: US)
  Receive Date: 20130507
  Receipt Date: 20130627
  Transmission Date: 20140414
  Serious: Yes (Death, Hospitalization)
  Sender: FDA-Public Use
  Company Number: US-PFIZER INC-2013141320

PATIENT
  Age: 57 Year
  Sex: Male

DRUGS (1)
  1. SUTENT [Suspect]
     Indication: RENAL CELL CARCINOMA
     Dosage: 50 MG, 4 WK ON 2 WK OFF
     Route: 048
     Dates: start: 20121120, end: 20130313

REACTIONS (5)
  - Sepsis [Fatal]
  - Pneumonia [Fatal]
  - Respiratory failure [Fatal]
  - Disease progression [Fatal]
  - Renal cell carcinoma [Fatal]
